FAERS Safety Report 11162496 (Version 1)
Quarter: 2015Q2

REPORT INFORMATION
  Report Type: Spontaneous
  Country: US (occurrence: None)
  Receive Date: 20150603
  Receipt Date: 20150603
  Transmission Date: 20150821
  Serious: No
  Sender: FDA-Public Use
  Company Number: None

PATIENT
  Sex: Female

DRUGS (1)
  1. DURAGESIC [Suspect]
     Active Substance: FENTANYL
     Dosage: 25MCG/HR  1 PATCH EVERY 3 DAYS  TRANSDERMAL
     Route: 062

REACTIONS (4)
  - Skin irritation [None]
  - Drug intolerance [None]
  - Gastrointestinal disorder [None]
  - Drug ineffective [None]
